FAERS Safety Report 8872562 (Version 1)
Quarter: 2012Q4

REPORT INFORMATION
  Report Type: 
  Country: US (occurrence: US)
  Receive Date: 20121026
  Receipt Date: 20121026
  Transmission Date: 20130627
  Serious: No
  Sender: FDA-Public Use
  Company Number: US-AMGEN-USASP2012049746

PATIENT
  Age: 64 Year
  Sex: Female

DRUGS (9)
  1. ENBREL [Suspect]
     Indication: PRODUCT USED FOR UNKNOWN INDICATION
     Dosage: 50 mg, qwk
     Route: 058
     Dates: start: 201204
  2. CLIMARA [Concomitant]
  3. CYTOMEL [Concomitant]
  4. LEXAPRO [Concomitant]
  5. LYRICA [Concomitant]
  6. SOMA [Concomitant]
  7. SYNTHROID [Concomitant]
  8. VICODIN [Concomitant]
  9. ZOCOR [Concomitant]

REACTIONS (1)
  - Paraesthesia [Unknown]
